FAERS Safety Report 24128278 (Version 1)
Quarter: 2024Q3

REPORT INFORMATION
  Report Type: Spontaneous
  Country: CA (occurrence: CA)
  Receive Date: 20240723
  Receipt Date: 20240723
  Transmission Date: 20241017
  Serious: Yes (Other)
  Sender: BAXTER
  Company Number: CA-BAXTER-2024BAX021771

PATIENT
  Age: 40 Year
  Sex: Male

DRUGS (2)
  1. ACETAMINOPHEN [Suspect]
     Active Substance: ACETAMINOPHEN
     Indication: Product used for unknown indication
     Dosage: 325.0 MILLIGRAMS AT AN UNSPECIFIED FREQUENCY (DOSAGE FORM: NOT SPECIFIED)
     Route: 065
  2. OCRELIZUMAB [Suspect]
     Active Substance: OCRELIZUMAB
     Indication: Multiple sclerosis
     Dosage: 600.0 MILLIGRAMS, 1 EVERY 6 MONTHS
     Route: 042

REACTIONS (2)
  - Diabetes mellitus [Recovered/Resolved]
  - Extra dose administered [Recovered/Resolved]
